FAERS Safety Report 7925417-X (Version None)
Quarter: 2011Q4

REPORT INFORMATION
  Report Type: 
  Country: None (occurrence: None)
  Receive Date: 20111118
  Receipt Date: 20110406
  Transmission Date: 20120403
  Serious: No
  Sender: FDA-Public Use
  Company Number: US-AMGEN-USASP2011009146

PATIENT
  Age: 45 Year
  Sex: Female

DRUGS (1)
  1. ENBREL [Suspect]
     Indication: PSORIASIS
     Dosage: 50 MG, QWK
     Dates: start: 20101101

REACTIONS (13)
  - HAEMOPTYSIS [None]
  - SINUS HEADACHE [None]
  - ARTHRALGIA [None]
  - ROTATOR CUFF SYNDROME [None]
  - DRY MOUTH [None]
  - NECK PAIN [None]
  - JOINT SWELLING [None]
  - DYSSTASIA [None]
  - JOINT DESTRUCTION [None]
  - COUGH [None]
  - MUSCULOSKELETAL STIFFNESS [None]
  - MUSCULOSKELETAL PAIN [None]
  - GAIT DISTURBANCE [None]
